FAERS Safety Report 6134171-6 (Version None)
Quarter: 2009Q1

REPORT INFORMATION
  Report Type: 
  Country: None (occurrence: None)
  Receive Date: 20090326
  Receipt Date: 20090120
  Transmission Date: 20090719
  Serious: No
  Sender: FDA-Public Use
  Company Number: US-AMGEN-US329347

PATIENT
  Sex: Female

DRUGS (2)
  1. NPLATE [Suspect]
     Indication: THROMBOCYTOPENIA
  2. DANAZOL [Concomitant]

REACTIONS (2)
  - AMNESIA [None]
  - COGNITIVE DISORDER [None]
